FAERS Safety Report 5654532-9 (Version None)
Quarter: 2008Q1

REPORT INFORMATION
  Report Type: 
  Country: None (occurrence: None)
  Receive Date: 20080307
  Receipt Date: 20080225
  Transmission Date: 20080703
  Serious: Yes (Hospitalization)
  Sender: FDA-Public Use
  Company Number: US-KINGPHARMUSA00001-K200800246

PATIENT

DRUGS (1)
  1. SEPTRA [Suspect]
     Indication: SINUSITIS

REACTIONS (8)
  - ACUTE FEBRILE NEUTROPHILIC DERMATOSIS [None]
  - BLISTER [None]
  - MYALGIA [None]
  - MYELOID MATURATION ARREST [None]
  - NODULE [None]
  - PAIN [None]
  - PYREXIA [None]
  - WHITE BLOOD CELL COUNT DECREASED [None]
